FAERS Safety Report 23594842 (Version 1)
Quarter: 2024Q1

REPORT INFORMATION
  Report Type: Spontaneous
  Country: US (occurrence: US)
  Receive Date: 20240305
  Receipt Date: 20240305
  Transmission Date: 20240410
  Serious: No
  Sender: FDA-Public Use
  Company Number: US-PADAGIS-2024PAD00291

PATIENT

DRUGS (2)
  1. DEXTROSE [Suspect]
     Active Substance: DEXTROSE\DEXTROSE MONOHYDRATE
     Indication: Blood glucose decreased
     Dosage: AS NEEDED FOR 3-4 YEARS
     Route: 048
  2. OZEMPIC [Suspect]
     Active Substance: SEMAGLUTIDE
     Indication: Product used for unknown indication
     Dosage: UNK
     Route: 065
     Dates: start: 20240210

REACTIONS (9)
  - Gastritis [Unknown]
  - Blood glucose abnormal [Unknown]
  - Blood pressure abnormal [Unknown]
  - Vision blurred [Unknown]
  - Illness [Unknown]
  - Illness [Unknown]
  - Diarrhoea [Unknown]
  - Vertigo [Unknown]
  - Product packaging difficult to open [Unknown]

NARRATIVE: CASE EVENT DATE: 20240211
